FAERS Safety Report 4493948-3 (Version None)
Quarter: 2004Q4

REPORT INFORMATION
  Report Type: 
  Country: None (occurrence: None)
  Receive Date: 20041105
  Receipt Date: 20041028
  Transmission Date: 20050328
  Serious: Yes (Hospitalization)
  Sender: FDA-Public Use
  Company Number: US-JNJFOC-20041100055

PATIENT
  Sex: Female
  Weight: 91.17 kg

DRUGS (9)
  1. INFLIXIMAB [Suspect]
     Indication: RHEUMATOID ARTHRITIS
     Route: 042
  2. METHOTREXATE [Concomitant]
  3. FOLIC ACID [Concomitant]
  4. KLOR-CON [Concomitant]
  5. OXYCODONE [Concomitant]
  6. OXYCONTIN [Concomitant]
  7. HUMALOG [Concomitant]
  8. FUROSEMIDE [Concomitant]
  9. PLENDIL [Concomitant]

REACTIONS (3)
  - ANGINA UNSTABLE [None]
  - BLOOD PRESSURE INCREASED [None]
  - CORONARY ARTERY DISEASE [None]
